FAERS Safety Report 9736263 (Version 2)
Quarter: 2013Q4

REPORT INFORMATION
  Report Type: Spontaneous
  Country: US (occurrence: US)
  Receive Date: 20131206
  Receipt Date: 20131206
  Transmission Date: 20140711
  Serious: Yes (Hospitalization)
  Sender: FDA-Public Use
  Company Number: US-PFIZER INC-2013344557

PATIENT
  Age: 75 Year
  Sex: Male

DRUGS (1)
  1. FLUCONAZOLE [Suspect]
     Indication: PROPHYLAXIS
     Dosage: UNK

REACTIONS (4)
  - Torsade de pointes [Recovered/Resolved]
  - Syncope [Recovered/Resolved]
  - Bradycardia [Recovered/Resolved]
  - Ventricular tachycardia [Recovered/Resolved]
